FAERS Safety Report 8205769-6 (Version None)
Quarter: 2012Q1

REPORT INFORMATION
  Report Type: 
  Country: None (occurrence: None)
  Receive Date: 20120313
  Receipt Date: 20120309
  Transmission Date: 20120608
  Serious: Yes (Other)
  Sender: FDA-Public Use
  Company Number: US-PFIZER INC-2012025431

PATIENT
  Sex: Female
  Weight: 47 kg

DRUGS (5)
  1. LIPITOR [Suspect]
     Indication: BLOOD CHOLESTEROL INCREASED
     Dosage: UNK
     Route: 048
     Dates: start: 20080101
  2. CALCIUM CARBONATE/RISEDRONATE SODIUM [Concomitant]
     Dosage: UNK
  3. LIPITOR [Suspect]
     Dosage: UNK, ONCE A WEEK
  4. CHANTIX [Suspect]
     Dosage: UNK
     Dates: start: 20060101, end: 20060101
  5. TEMAZEPAM [Concomitant]
     Indication: SLEEP DISORDER
     Dosage: 20 MG, UNK

REACTIONS (3)
  - INSOMNIA [None]
  - DYSPNOEA [None]
  - NERVOUSNESS [None]
